FAERS Safety Report 10187873 (Version 1)
Quarter: 2014Q2

REPORT INFORMATION
  Report Type: Spontaneous
  Country: US (occurrence: US)
  Receive Date: 20140522
  Receipt Date: 20140522
  Transmission Date: 20141212
  Serious: No
  Sender: FDA-Public Use
  Company Number: US-SA-2013SA107690

PATIENT
  Age: 60 Year
  Sex: Male

DRUGS (2)
  1. LANTUS SOLOSTAR [Suspect]
     Indication: TYPE 2 DIABETES MELLITUS
     Dosage: 15-18 U?3 MONTHS
     Route: 051
  2. SOLOSTAR [Concomitant]
     Dosage: 3 MONTHS

REACTIONS (3)
  - Injection site pain [Unknown]
  - Incorrect product storage [Unknown]
  - Expired product administered [Unknown]
